FAERS Safety Report 12167079 (Version 1)
Quarter: 2016Q1

REPORT INFORMATION
  Report Type: Spontaneous
  Country: US (occurrence: None)
  Receive Date: 20160309
  Receipt Date: 20160309
  Transmission Date: 20160526
  Serious: Yes (Other)
  Sender: FDA-Public Use
  Company Number: None

PATIENT
  Age: 43 Year
  Sex: Male

DRUGS (1)
  1. XELODA [Suspect]
     Active Substance: CAPECITABINE
     Indication: PANCREATIC CARCINOMA
     Dosage: 2 BY MOUTH TWICE A DAY
     Route: 048
     Dates: start: 20141112, end: 201507

REACTIONS (1)
  - Disease progression [None]

NARRATIVE: CASE EVENT DATE: 20150715
